FAERS Safety Report 4610841-3 (Version None)
Quarter: 2005Q2

REPORT INFORMATION
  Report Type: 
  Country: None (occurrence: None)
  Receive Date: 20050303
  Receipt Date: 20041116
  Transmission Date: 20051028
  Serious: No
  Sender: FDA-Public Use
  Company Number: 200420848BWH

PATIENT
  Age: 31 Year
  Sex: Male

DRUGS (1)
  1. LEVITRA [Suspect]
     Indication: PREMATURE EJACULATION
     Dosage: 5 MG, QD, ORAL
     Route: 048
     Dates: start: 20041001, end: 20041008

REACTIONS (1)
  - PENILE PAIN [None]
